FAERS Safety Report 6803943-4 (Version None)
Quarter: 2010Q2

REPORT INFORMATION
  Report Type: 
  Country: None (occurrence: None)
  Receive Date: 20100628
  Receipt Date: 20060515
  Transmission Date: 20101027
  Serious: Yes (Other)
  Sender: FDA-Public Use
  Company Number: US-PFIZER INC-2006064138

PATIENT
  Sex: Male
  Weight: 74.39 kg

DRUGS (12)
  1. SUTENT [Suspect]
     Indication: METASTATIC RENAL CELL CARCINOMA
     Dosage: CYCLIC
     Route: 065
     Dates: start: 20060403
  2. MONOPRIL [Concomitant]
     Route: 065
  3. OXYCODONE HCL [Concomitant]
     Route: 065
  4. CALCIUM CARBONATE [Concomitant]
     Route: 065
  5. PROTONIX [Concomitant]
     Route: 065
  6. SYNTHROID [Concomitant]
     Route: 065
  7. ZOLOFT [Concomitant]
     Route: 065
  8. ZOCOR [Concomitant]
     Route: 065
  9. COLACE [Concomitant]
     Route: 065
  10. TEMAZEPAM [Concomitant]
     Route: 065
  11. SIMETHICONE [Concomitant]
     Route: 065
  12. ZOMETA [Concomitant]
     Route: 065

REACTIONS (1)
  - PLATELET COUNT DECREASED [None]
